FAERS Safety Report 9616921 (Version 1)
Quarter: 2013Q4

REPORT INFORMATION
  Report Type: Spontaneous
  Country: US (occurrence: None)
  Receive Date: 20131010
  Receipt Date: 20131010
  Transmission Date: 20140711
  Serious: No
  Sender: FDA-Public Use
  Company Number: None

PATIENT
  Age: 81 Year
  Sex: Female

DRUGS (1)
  1. ARANESP [Suspect]
     Indication: LYMPHOPROLIFERATIVE DISORDER
     Route: 058
     Dates: start: 20130923, end: 20131009

REACTIONS (1)
  - Memory impairment [None]
